FAERS Safety Report 4519095-X (Version None)
Quarter: 2004Q4

REPORT INFORMATION
  Report Type: 
  Country: None (occurrence: None)
  Receive Date: 20041206
  Receipt Date: 20040913
  Transmission Date: 20050328
  Serious: Yes (Other)
  Sender: FDA-Public Use
  Company Number: US-BRISTOL-MYERS SQUIBB COMPANY-12700290

PATIENT
  Age: 78 Year
  Sex: Female
  Weight: 66 kg

DRUGS (3)
  1. ERBITUX [Suspect]
     Indication: COLORECTAL CANCER METASTATIC
     Dosage: 2ND DOSE
     Route: 042
     Dates: start: 20040907, end: 20040907
  2. BENADRYL [Concomitant]
     Indication: PREMEDICATION
     Dates: start: 20040906, end: 20040906
  3. ASPIRIN [Concomitant]

REACTIONS (2)
  - SKIN DISORDER [None]
  - VAGINAL HAEMORRHAGE [None]
